FAERS Safety Report 8461788-6 (Version None)
Quarter: 2012Q2

REPORT INFORMATION
  Report Type: 
  Country: None (occurrence: None)
  Receive Date: 20120625
  Receipt Date: 20120615
  Transmission Date: 20120825
  Serious: Yes (Hospitalization)
  Sender: FDA-Public Use
  Company Number: US-BAYER-2011-075143

PATIENT
  Age: 19 Year
  Sex: Female
  Weight: 77.098 kg

DRUGS (3)
  1. YASMIN [Suspect]
     Indication: CONTRACEPTION
     Dosage: UNK
     Dates: start: 20050101, end: 20080101
  2. BUPROPION HCL [Concomitant]
     Dosage: 150 MG, UNK
  3. ZOLPIDEM [Concomitant]
     Dosage: 10 MG, UNK

REACTIONS (4)
  - GALLBLADDER INJURY [None]
  - CHOLECYSTITIS CHRONIC [None]
  - PAIN [None]
  - INJURY [None]
